FAERS Safety Report 7978736-5 (Version None)
Quarter: 2011Q4

REPORT INFORMATION
  Report Type: 
  Country: None (occurrence: None)
  Receive Date: 20111214
  Receipt Date: 20111206
  Transmission Date: 20120403
  Serious: Yes (Disabling, Other)
  Sender: FDA-Public Use
  Company Number: FR-ASTELLAS-2011EU009101

PATIENT
  Sex: Male
  Weight: 61 kg

DRUGS (8)
  1. SPAGULAX [Concomitant]
     Indication: CONSTIPATION
     Dosage: UNK
     Route: 048
     Dates: start: 20110221
  2. TACROLIMUS [Suspect]
     Indication: RENAL TRANSPLANT
     Dosage: 5 MG, UNKNOWN/D
     Route: 048
     Dates: start: 20110705, end: 20111004
  3. PROGRAF [Suspect]
     Dosage: 6 MG, UNKNOWN/D
     Route: 065
  4. MYCOPHENOLATE MOFETIL [Concomitant]
     Dosage: UNK
     Route: 065
  5. TACROLIMUS [Suspect]
     Dosage: 7 MG, UNKNOWN/D
     Route: 048
  6. MYFORTIC [Concomitant]
     Indication: PROPHYLAXIS AGAINST TRANSPLANT REJECTION
     Dosage: 1.5 G, UNKNOWN/D
     Route: 048
     Dates: start: 20110114
  7. PROGRAF [Suspect]
     Indication: RENAL TRANSPLANT
     Dosage: 5 MG, UNKNOWN/D
     Route: 065
  8. NASACORT [Concomitant]
     Indication: RHINITIS ALLERGIC
     Dosage: 100 UG, UNKNOWN/D
     Route: 045
     Dates: start: 20110221

REACTIONS (9)
  - GENERAL PHYSICAL HEALTH DETERIORATION [None]
  - PYREXIA [None]
  - HEADACHE [None]
  - FATIGUE [None]
  - BLOOD GLUCOSE INCREASED [None]
  - TINNITUS [None]
  - DEPRESSION [None]
  - PARAESTHESIA [None]
  - TOXICITY TO VARIOUS AGENTS [None]
